FAERS Safety Report 24430776 (Version 1)
Quarter: 2024Q4

REPORT INFORMATION
  Report Type: Spontaneous
  Country: JP (occurrence: None)
  Receive Date: 20241014
  Receipt Date: 20241014
  Transmission Date: 20250115
  Serious: Yes (Other)
  Sender: NATCO PHARMA
  Company Number: JP-NATCOUSA-2024-NATCOUSA-000232

PATIENT
  Age: 83 Year
  Sex: Female

DRUGS (1)
  1. GEFITINIB [Suspect]
     Active Substance: GEFITINIB
     Indication: Adenocarcinoma
     Dosage: 250 MG DAILY AS FIRST-LINE THERAPY

REACTIONS (1)
  - Anaemia [Unknown]
